FAERS Safety Report 6534440-1 (Version None)
Quarter: 2009Q4

REPORT INFORMATION
  Report Type: 
  Country: None (occurrence: None)
  Receive Date: 20091228
  Receipt Date: 20090618
  Transmission Date: 20100525
  Serious: Yes (Other)
  Sender: FDA-Public Use
  Company Number: 20090256

PATIENT
  Age: 76 Year
  Sex: Female
  Weight: 73.4827 kg

DRUGS (12)
  1. VENOFER [Suspect]
     Indication: IRON DEFICIENCY ANAEMIA
     Dosage: 500 MG IN 250ML NS INTRAVENOUS
     Route: 042
     Dates: start: 20090610, end: 20090616
  2. CALCIUM [Concomitant]
  3. COZAAR [Concomitant]
  4. FISH OIL [Concomitant]
  5. PROZAC [Concomitant]
  6. SPIRONOLACTONE [Concomitant]
  7. COLCHICINE [Concomitant]
  8. CRESTOR [Concomitant]
  9. FLAX SEED OIL [Concomitant]
  10. PREMARIN [Concomitant]
  11. PRILOSEC [Concomitant]
  12. XANAX [Concomitant]

REACTIONS (2)
  - ANAPHYLACTOID REACTION [None]
  - ARTHRALGIA [None]
